FAERS Safety Report 8261187-6 (Version None)
Quarter: 2012Q2

REPORT INFORMATION
  Report Type: 
  Country: None (occurrence: None)
  Receive Date: 20120405
  Receipt Date: 20120328
  Transmission Date: 20120825
  Serious: Yes (Disabling)
  Sender: FDA-Public Use
  Company Number: FR-JNJFOC-20111200911

PATIENT
  Sex: Female

DRUGS (13)
  1. MEDIATOR [Suspect]
     Route: 048
     Dates: start: 20051001, end: 20051201
  2. GLUCOPHAGE [Concomitant]
     Indication: TYPE 2 DIABETES MELLITUS
     Route: 065
  3. ESCITALOPRAM OXALATE [Concomitant]
     Indication: DEPRESSION
     Route: 065
  4. CONCERTA [Suspect]
     Indication: NARCOLEPSY
     Route: 048
     Dates: start: 20060101, end: 20080101
  5. MEDIATOR [Suspect]
     Route: 048
     Dates: start: 20040601
  6. XYREM [Concomitant]
     Indication: NARCOLEPSY
     Route: 065
     Dates: start: 20080901
  7. MEDIATOR [Suspect]
     Indication: PRODUCT USED FOR UNKNOWN INDICATION
     Route: 048
     Dates: start: 20040101, end: 20051201
  8. DEXTROAMPHETAMINE [Suspect]
     Indication: PRODUCT USED FOR UNKNOWN INDICATION
     Route: 048
     Dates: start: 20081101, end: 20110401
  9. DEXEDRINE [Concomitant]
     Indication: NARCOLEPSY
     Route: 065
     Dates: start: 20081101
  10. RITALIN [Suspect]
     Indication: NARCOLEPSY
     Route: 048
     Dates: start: 20060101, end: 20081101
  11. PREDNISONE TAB [Concomitant]
     Indication: SYSTEMIC LUPUS ERYTHEMATOSUS
     Route: 065
  12. PLAQUENIL [Concomitant]
     Indication: SYSTEMIC LUPUS ERYTHEMATOSUS
     Route: 065
  13. MODAFANIL [Concomitant]
     Indication: NARCOLEPSY
     Route: 065
     Dates: start: 20060101

REACTIONS (2)
  - OFF LABEL USE [None]
  - AORTIC VALVE INCOMPETENCE [None]
